FAERS Safety Report 6104912-2 (Version None)
Quarter: 2009Q1

REPORT INFORMATION
  Report Type: 
  Country: None (occurrence: None)
  Receive Date: 20090304
  Receipt Date: 20090304
  Transmission Date: 20090719
  Serious: Yes (Other)
  Sender: FDA-Public Use
  Company Number: None

PATIENT
  Sex: Female
  Weight: 58.9676 kg

DRUGS (3)
  1. AVELOX [Suspect]
     Indication: SINUSITIS
     Dosage: 400 MG QD ORAL
     Route: 048
     Dates: start: 20050501
  2. AVELOX [Suspect]
     Indication: SINUSITIS
     Dosage: 400 MG QD ORAL
     Route: 048
     Dates: start: 20060501
  3. AVELOX [Suspect]
     Indication: SINUSITIS
     Dosage: 400 MG QD ORAL
     Route: 048
     Dates: start: 20071001

REACTIONS (19)
  - DIARRHOEA [None]
  - DISTURBANCE IN ATTENTION [None]
  - DRY EYE [None]
  - FATIGUE [None]
  - FEELING ABNORMAL [None]
  - HYPOTONIA [None]
  - INSOMNIA [None]
  - MUSCLE TWITCHING [None]
  - MYALGIA [None]
  - NERVOUS SYSTEM DISORDER [None]
  - PALPITATIONS [None]
  - PELVIC PAIN [None]
  - PERIPHERAL COLDNESS [None]
  - PROCTALGIA [None]
  - SINUS DISORDER [None]
  - SYNCOPE [None]
  - TEMPERATURE REGULATION DISORDER [None]
  - TENDONITIS [None]
  - VISION BLURRED [None]
